FAERS Safety Report 7376359-2 (Version None)
Quarter: 2011Q1

REPORT INFORMATION
  Report Type: 
  Country: None (occurrence: None)
  Receive Date: 20110316
  Receipt Date: 20110111
  Transmission Date: 20110831
  Serious: Yes (Other)
  Sender: FDA-Public Use
  Company Number: WWISSUE-544

PATIENT
  Age: 61 Year
  Sex: Female
  Weight: 99.7913 kg

DRUGS (7)
  1. VITAMIN E [Concomitant]
  2. SIMVASTATIN [Concomitant]
  3. ATENOLOL [Concomitant]
  4. COLCHICINE [Suspect]
     Dosage: 0.6MG/BID
     Dates: start: 20100601, end: 20101101
  5. VITAMIN D [Concomitant]
  6. SYNTHROID [Concomitant]
  7. AMBIEN DR [Concomitant]

REACTIONS (1)
  - BACK PAIN [None]
